FAERS Safety Report 20804774 (Version 4)
Quarter: 2022Q2

REPORT INFORMATION
  Report Type: Spontaneous
  Country: US (occurrence: US)
  Receive Date: 20220509
  Receipt Date: 20220628
  Transmission Date: 20220720
  Serious: Yes (Other)
  Sender: FDA-Public Use
  Company Number: US-ELI_LILLY_AND_COMPANY-US202205000086

PATIENT
  Age: 56 Year
  Sex: Female
  Weight: 85.729 kg

DRUGS (5)
  1. TADALAFIL [Suspect]
     Active Substance: TADALAFIL
     Indication: Pulmonary arterial hypertension
     Dosage: UNK UNK, UNKNOWN
     Route: 065
  2. TYVASO [Suspect]
     Active Substance: TREPROSTINIL
     Indication: Pulmonary arterial hypertension
     Dosage: 3-12 BREATHS, QID
     Route: 055
     Dates: start: 20220411
  3. TYVASO [Suspect]
     Active Substance: TREPROSTINIL
     Dosage: 2 BREATHS, BID
     Route: 065
  4. SILDENAFIL CITRATE [Suspect]
     Active Substance: SILDENAFIL CITRATE
     Indication: Product used for unknown indication
     Dosage: UNK UNK, UNKNOWN
     Route: 065
  5. OPSUMIT [Concomitant]
     Active Substance: MACITENTAN
     Indication: Product used for unknown indication

REACTIONS (19)
  - Loss of consciousness [Unknown]
  - Hypotension [Unknown]
  - Syncope [Unknown]
  - Sinus disorder [Unknown]
  - Throat irritation [Unknown]
  - Pruritus [Unknown]
  - Throat tightness [Unknown]
  - Seasonal allergy [Unknown]
  - Ascites [Unknown]
  - Limb injury [Unknown]
  - Exercise tolerance decreased [Unknown]
  - Oedema [Unknown]
  - Cough [Unknown]
  - Insomnia [Unknown]
  - Headache [Recovered/Resolved]
  - Dizziness [Unknown]
  - Fatigue [Unknown]
  - Dyspnoea exertional [Unknown]
  - Rhinorrhoea [Unknown]

NARRATIVE: CASE EVENT DATE: 20220429
